FAERS Safety Report 7341489-8 (Version None)
Quarter: 2011Q1

REPORT INFORMATION
  Report Type: 
  Country: None (occurrence: None)
  Receive Date: 20110309
  Receipt Date: 20110308
  Transmission Date: 20110831
  Serious: Yes (Life-Threatening, Other)
  Sender: FDA-Public Use
  Company Number: PHHY2011US13631

PATIENT
  Sex: Female

DRUGS (7)
  1. TRILEPTAL [Suspect]
     Dosage: 150 MG IN MORNING AND 300 MG AT NIGHT
     Route: 050
     Dates: end: 20110212
  2. BISOPROLOL FUMARATE [Concomitant]
     Indication: PSYCHOTIC DISORDER
     Dosage: 1 MG, UNK
     Dates: start: 20090101
  3. BISOPROLOL FUMARATE [Concomitant]
     Dosage: UNK
  4. TRILEPTAL [Suspect]
     Indication: BIPOLAR DISORDER
     Dosage: 150 MG, BID
     Route: 048
     Dates: start: 20110103
  5. METOPRIL [Concomitant]
     Indication: INSOMNIA
     Dosage: 15 MG, UNK
     Route: 048
     Dates: start: 20100329
  6. RISPERDAL [Concomitant]
     Indication: PSYCHOTIC DISORDER
     Dosage: 1 G, QHS
     Dates: start: 20090101
  7. ARICEPT [Concomitant]
     Indication: MEMORY IMPAIRMENT
     Dosage: 10 MG, UNK
     Route: 048
     Dates: start: 20110131

REACTIONS (8)
  - MUSCULOSKELETAL STIFFNESS [None]
  - MUSCLE RIGIDITY [None]
  - ABASIA [None]
  - TREMOR [None]
  - URTICARIA [None]
  - ASTHENIA [None]
  - GAIT DISTURBANCE [None]
  - SWOLLEN TONGUE [None]
